FAERS Safety Report 25937529 (Version 1)
Quarter: 2025Q4

REPORT INFORMATION
  Report Type: Spontaneous
  Country: EU (occurrence: EU)
  Receive Date: 20251018
  Receipt Date: 20251018
  Transmission Date: 20260118
  Serious: Yes (Hospitalization, Other)
  Sender: ACCORD
  Company Number: None

PATIENT
  Age: 68 Year
  Sex: Male
  Weight: 49 kg

DRUGS (6)
  1. CAPECITABINE [Suspect]
     Active Substance: CAPECITABINE
     Indication: Ductal adenocarcinoma of pancreas
     Dosage: 1000MG/TWICE DAILY FOR 14 DAYS, FOLLOWED BY 14 DAYS OF STOPPED
     Dates: start: 20250523
  2. GEMCITABINE [Suspect]
     Active Substance: GEMCITABINE
     Indication: Ductal adenocarcinoma of pancreas
     Dosage: 1500MG/WEEKLY
     Dates: start: 20250215, end: 20250404
  3. ABRAXANE [Suspect]
     Active Substance: PACLITAXEL
     Indication: Ductal adenocarcinoma of pancreas
     Dosage: 160MG/WEEKLY
     Dates: start: 20250215
  4. OMEPRAZOLE [Concomitant]
     Active Substance: OMEPRAZOLE
     Indication: Prophylaxis against gastrointestinal ulcer
     Dosage: 1 TABLET/DAY
  5. TACHIPIRINA [Concomitant]
     Active Substance: ACETAMINOPHEN
     Indication: Pain
     Dosage: 1000MG/EVERY 8 HOURS
  6. DEXAMETHASONE [Concomitant]
     Active Substance: DEXAMETHASONE
     Indication: Chemotherapy side effect prophylaxis
     Dosage: 8MG/AS A PREMEDICATION FOR CHEMOTHERAPY
     Dates: start: 20250215

REACTIONS (2)
  - Interstitial lung disease [Recovered/Resolved]
  - Peripheral vein thrombosis [Recovering/Resolving]

NARRATIVE: CASE EVENT DATE: 20250404
